FAERS Safety Report 6199706-6 (Version None)
Quarter: 2009Q2

REPORT INFORMATION
  Report Type: 
  Country: None (occurrence: None)
  Receive Date: 20090522
  Receipt Date: 20090513
  Transmission Date: 20091009
  Serious: Yes (Other)
  Sender: FDA-Public Use
  Company Number: MX-PFIZER INC-2009213630

PATIENT
  Age: 44 Year

DRUGS (3)
  1. LYRICA [Suspect]
     Indication: PROCEDURAL PAIN
     Dosage: 75 MG, 1X/DAY
     Route: 048
     Dates: start: 20090312
  2. DOLAC [Concomitant]
     Indication: PAIN
     Dosage: 1 TABLET EVERY 6 HOURS
     Route: 048
     Dates: start: 20090312, end: 20090401
  3. CATAFLAM [Concomitant]
     Indication: PAIN
     Dosage: 1 TABLET, 3X/DAY
     Route: 048
     Dates: start: 20090312, end: 20090401

REACTIONS (3)
  - DEPRESSIVE SYMPTOM [None]
  - EMOTIONAL DISTRESS [None]
  - SUICIDAL IDEATION [None]
